FAERS Safety Report 19072734 (Version 1)
Quarter: 2021Q1

REPORT INFORMATION
  Report Type: Spontaneous
  Country: US (occurrence: US)
  Receive Date: 20210326
  Receipt Date: 20210326
  Transmission Date: 20210420
  Serious: No
  Sender: FDA-Public Use
  Company Number: None

PATIENT
  Age: 90 Year
  Sex: Male

DRUGS (1)
  1. EMPAGLIFLOZIN (EMPAGLIFLOZIN 25MG TAB) [Suspect]
     Active Substance: EMPAGLIFLOZIN
     Indication: DIABETES MELLITUS
     Dosage: OTHER FREQUENCY:AM;?
     Route: 048
     Dates: start: 20210128, end: 20210305

REACTIONS (3)
  - Hypotension [None]
  - Acute kidney injury [None]
  - Dizziness [None]

NARRATIVE: CASE EVENT DATE: 20210304
